FAERS Safety Report 9412567 (Version 1)
Quarter: 2013Q3

REPORT INFORMATION
  Report Type: Spontaneous
  Country: AT (occurrence: AT)
  Receive Date: 20130722
  Receipt Date: 20130722
  Transmission Date: 20140515
  Serious: Yes (Other)
  Sender: FDA-Public Use
  Company Number: AT-ELI_LILLY_AND_COMPANY-AT201307004364

PATIENT
  Age: 60 Year
  Sex: Female

DRUGS (3)
  1. OLANZAPINE [Suspect]
     Indication: MAJOR DEPRESSION
     Dosage: 15 MG, UNKNOWN
     Route: 048
     Dates: start: 201304
  2. EFECTIN [Concomitant]
     Dosage: 1 DF, UNKNOWN
  3. ABILIFY [Concomitant]
     Dosage: 1 DF, UNKNOWN

REACTIONS (2)
  - Leukopenia [Unknown]
  - Thrombocytopenia [Unknown]
